FAERS Safety Report 9857314 (Version 1)
Quarter: 2014Q1

REPORT INFORMATION
  Report Type: Spontaneous
  Country: MX (occurrence: MX)
  Receive Date: 20140130
  Receipt Date: 20140130
  Transmission Date: 20141002
  Serious: Yes (Other)
  Sender: FDA-Public Use
  Company Number: PHHY2014MX010295

PATIENT
  Age: 68 Year
  Sex: Male

DRUGS (3)
  1. STALEVO [Suspect]
     Indication: PARKINSON^S DISEASE
     Dosage: 3 DF, DAILY (3 DF OF 200 MG/150 MG/37.5 MG DAILY)
     Route: 048
  2. STALEVO [Suspect]
     Dosage: 3 DF, DAILY (3 DF OF 200 MG/150 MG/37.5 MG DAILY)
     Route: 048
  3. INSULIN [Suspect]
     Indication: DIABETES MELLITUS
     Dosage: 33 ML, DAILY
     Dates: start: 200601

REACTIONS (2)
  - Blindness [Not Recovered/Not Resolved]
  - Concomitant disease progression [Not Recovered/Not Resolved]
